FAERS Safety Report 5296102-0 (Version None)
Quarter: 2007Q2

REPORT INFORMATION
  Report Type: 
  Country: None (occurrence: None)
  Receive Date: 20070413
  Receipt Date: 20070410
  Transmission Date: 20071010
  Serious: Yes (Life-Threatening)
  Sender: FDA-Public Use
  Company Number: ES-AVENTIS-200713172GDDC

PATIENT
  Sex: Male

DRUGS (1)
  1. TAXOTERE [Suspect]
     Route: 042

REACTIONS (1)
  - CARDIO-RESPIRATORY ARREST [None]
